FAERS Safety Report 15866444 (Version 2)
Quarter: 2019Q1

REPORT INFORMATION
  Report Type: Spontaneous
  Country: US (occurrence: US)
  Receive Date: 20190125
  Receipt Date: 20190130
  Transmission Date: 20190417
  Serious: No
  Sender: FDA-Public Use
  Company Number: US-PFIZER INC-2019031255

PATIENT
  Age: 66 Year
  Sex: Female

DRUGS (18)
  1. OCALIVA [Suspect]
     Active Substance: OBETICHOLIC ACID
     Indication: PRIMARY BILIARY CHOLANGITIS
     Dosage: 5 MG, WEEKLY
     Route: 048
     Dates: start: 20180810, end: 2018
  2. TRINTELLIX [Concomitant]
     Active Substance: VORTIOXETINE HYDROBROMIDE
     Dosage: UNK
  3. URSODIOL. [Concomitant]
     Active Substance: URSODIOL
     Dosage: UNK
  4. TRAZODONE [Concomitant]
     Active Substance: TRAZODONE HYDROCHLORIDE
     Dosage: UNK
  5. RIFAMPIN. [Concomitant]
     Active Substance: RIFAMPIN
     Dosage: UNK
  6. ADVIL [Concomitant]
     Active Substance: IBUPROFEN
     Dosage: UNK
  7. FERROUS SULFATE. [Concomitant]
     Active Substance: FERROUS SULFATE
     Dosage: UNK
  8. HYDROXYZINE PAMOATE. [Concomitant]
     Active Substance: HYDROXYZINE PAMOATE
     Dosage: UNK
  9. LACTULOSE. [Concomitant]
     Active Substance: LACTULOSE
     Dosage: UNK
  10. VITAMIN D [Concomitant]
     Active Substance: CHOLECALCIFEROL
     Dosage: UNK
  11. SOMAVERT [Suspect]
     Active Substance: PEGVISOMANT
     Dosage: UNK
  12. ACETAMINOPHEN. [Concomitant]
     Active Substance: ACETAMINOPHEN
     Dosage: UNK
  13. LEVOTHYROXINE SODIUM. [Concomitant]
     Active Substance: LEVOTHYROXINE SODIUM
     Dosage: UNK
  14. PANTOPRAZOLE SODIUM. [Concomitant]
     Active Substance: PANTOPRAZOLE SODIUM
     Dosage: UNK
  15. AMMONIUM LACTATE. [Concomitant]
     Active Substance: AMMONIUM LACTATE
     Dosage: UNK
  16. ASPIRIN. [Concomitant]
     Active Substance: ASPIRIN
     Dosage: UNK
  17. IBUPROFEN. [Concomitant]
     Active Substance: IBUPROFEN
     Dosage: UNK
  18. MULTIVITAMINUM [Concomitant]
     Dosage: UNK

REACTIONS (4)
  - Nausea [Unknown]
  - Pruritus [Unknown]
  - Malaise [Unknown]
  - Fatigue [Unknown]

NARRATIVE: CASE EVENT DATE: 201808
